FAERS Safety Report 5501572-6 (Version None)
Quarter: 2007Q4

REPORT INFORMATION
  Report Type: 
  Country: None (occurrence: None)
  Receive Date: 20071030
  Receipt Date: 20071018
  Transmission Date: 20080405
  Serious: Yes (Hospitalization)
  Sender: FDA-Public Use
  Company Number: FR-BRISTOL-MYERS SQUIBB COMPANY-13957550

PATIENT
  Age: 28 Year
  Sex: Female

DRUGS (11)
  1. ENDOXAN [Suspect]
     Indication: BURKITT'S LYMPHOMA
     Route: 042
     Dates: start: 20070823, end: 20070823
  2. METHOTREXATE [Suspect]
     Indication: BURKITT'S LYMPHOMA
     Dates: start: 20070828, end: 20070828
  3. VINCRISTINE SULFATE [Suspect]
     Indication: BURKITT'S LYMPHOMA
     Route: 042
     Dates: start: 20070823, end: 20070823
  4. CYTARABINE [Suspect]
     Indication: BURKITT'S LYMPHOMA
     Dates: start: 20070828, end: 20070828
  5. RITUXAN [Concomitant]
     Dates: start: 20070823, end: 20070823
  6. DOXORUBICIN HCL [Concomitant]
     Dates: start: 20070823, end: 20070823
  7. COMBIVIR [Concomitant]
  8. SUSTIVA [Concomitant]
  9. INIPOMP [Concomitant]
  10. CORTANCYL [Concomitant]
     Dates: start: 20070821, end: 20070902
  11. PREDNISONE [Concomitant]
     Dates: start: 20070828, end: 20070828

REACTIONS (7)
  - BONE MARROW FAILURE [None]
  - CONVULSION [None]
  - COUGH [None]
  - GRAND MAL CONVULSION [None]
  - LEUKOENCEPHALOPATHY [None]
  - OXYGEN SATURATION DECREASED [None]
  - RESPIRATORY DISTRESS [None]
